FAERS Safety Report 9526148 (Version 3)
Quarter: 2014Q1

REPORT INFORMATION
  Report Type: Spontaneous
  Country: US (occurrence: US)
  Receive Date: 20130916
  Receipt Date: 20140304
  Transmission Date: 20141002
  Serious: Yes (Other)
  Sender: FDA-Public Use
  Company Number: US-ABBVIE-13P-163-1145560-00

PATIENT
  Age: 84 Year
  Sex: Female
  Weight: 62.2 kg

DRUGS (9)
  1. SYNTHROID [Suspect]
     Indication: THYROID DISORDER
     Dates: start: 201307
  2. SYNTHROID [Suspect]
     Indication: HYPOTHYROIDISM
  3. UNKNOWN OA MEDICATION [Suspect]
     Indication: OSTEOARTHRITIS
  4. ATENOLOL [Concomitant]
     Indication: HYPERTENSION
  5. LISINOPRIL [Concomitant]
     Indication: HYPERTENSION
  6. XALATAN [Concomitant]
     Indication: GLAUCOMA
  7. TIMOLOL [Concomitant]
     Indication: GLAUCOMA
  8. DIAZEPAM [Concomitant]
     Indication: PRODUCT USED FOR UNKNOWN INDICATION
  9. TRAMADOL [Concomitant]
     Indication: ARTHRALGIA

REACTIONS (10)
  - Gait disturbance [Recovered/Resolved]
  - Drug ineffective [Recovered/Resolved]
  - Movement disorder [Recovered/Resolved]
  - Nervousness [Recovered/Resolved]
  - Depression [Not Recovered/Not Resolved]
  - Adverse drug reaction [Unknown]
  - Feeling abnormal [Not Recovered/Not Resolved]
  - Sensation of heaviness [Not Recovered/Not Resolved]
  - Balance disorder [Recovered/Resolved]
  - Gait disturbance [Recovered/Resolved]
